FAERS Safety Report 7801418-7 (Version None)
Quarter: 2011Q4

REPORT INFORMATION
  Report Type: 
  Country: None (occurrence: None)
  Receive Date: 20111006
  Receipt Date: 20111006
  Transmission Date: 20120403
  Serious: Yes (Hospitalization)
  Sender: FDA-Public Use
  Company Number: None

PATIENT
  Age: 60 Year
  Sex: Female
  Weight: 64 kg

DRUGS (7)
  1. CRESTOR [Concomitant]
  2. CISPLATIN [Suspect]
     Indication: CHEMOTHERAPY
     Dosage: Q WEEKLY IV RECENT
     Route: 042
  3. ATIVAN [Concomitant]
  4. OXYCONTIN [Concomitant]
  5. NEXIUM [Concomitant]
  6. ALBUTEROL [Concomitant]
  7. OXYCODONE HCL [Concomitant]

REACTIONS (10)
  - NEPHROPATHY TOXIC [None]
  - HYPOVOLAEMIA [None]
  - PANCYTOPENIA [None]
  - RENAL FAILURE CHRONIC [None]
  - RENAL FAILURE ACUTE [None]
  - FAILURE TO THRIVE [None]
  - OBSTRUCTION [None]
  - HAEMODIALYSIS [None]
  - FATIGUE [None]
  - RENAL TUBULAR NECROSIS [None]
